FAERS Safety Report 24384175 (Version 2)
Quarter: 2024Q4

REPORT INFORMATION
  Report Type: Report from Study
  Country: TW (occurrence: TW)
  Receive Date: 20241001
  Receipt Date: 20241010
  Transmission Date: 20250115
  Serious: Yes (Other)
  Sender: ABBVIE
  Company Number: TW-ABBVIE-5939273

PATIENT
  Age: 75 Year
  Sex: Female

DRUGS (1)
  1. RINVOQ [Suspect]
     Active Substance: UPADACITINIB
     Indication: Rheumatoid arthritis
     Dosage: FORM STRENGTH : 15 MG
     Route: 048
     Dates: start: 20240718, end: 20240910

REACTIONS (2)
  - Oral herpes [Recovering/Resolving]
  - Herpes dermatitis [Recovering/Resolving]

NARRATIVE: CASE EVENT DATE: 20240815
